FAERS Safety Report 8796148 (Version 1)
Quarter: 2012Q4

REPORT INFORMATION
  Report Type: 
  Country: US (occurrence: US)
  Receive Date: 20120920
  Receipt Date: 20120920
  Transmission Date: 20130627
  Serious: Yes (Hospitalization)
  Sender: FDA-Public Use
  Company Number: US-BAYER-2012-097134

PATIENT
  Age: 38 Year
  Sex: Female
  Weight: 57.14 kg

DRUGS (2)
  1. YASMIN [Suspect]
  2. ACETAMINOPHEN [Concomitant]

REACTIONS (1)
  - Cerebral artery thrombosis [None]
